FAERS Safety Report 25950337 (Version 1)
Quarter: 2025Q4

REPORT INFORMATION
  Report Type: Spontaneous
  Country: EU (occurrence: None)
  Receive Date: 20251022
  Receipt Date: 20251022
  Transmission Date: 20260119
  Serious: Yes (Hospitalization, Other)
  Sender: ENDO
  Company Number: EU-ENDO USA, INC.-2019-110945

PATIENT
  Age: 26 Year
  Sex: Male

DRUGS (4)
  1. TESTOSTERONE [Suspect]
     Active Substance: TESTOSTERONE
     Indication: Performance enhancing product use
     Dosage: UNK UNKNOWN, UNKNOWN
     Route: 065
  2. UNSPECIFIED INGREDIENT [Suspect]
     Active Substance: UNSPECIFIED INGREDIENT
     Indication: Product used for unknown indication
     Dosage: UNK UNKNOWN, UNKNOWN
     Route: 065
  3. SOMATROPIN [Suspect]
     Active Substance: SOMATROPIN
     Indication: Performance enhancing product use
     Dosage: UNK UNKNOWN, UNKNOWN
     Route: 065
  4. CLENBUTEROL [Suspect]
     Active Substance: CLENBUTEROL
     Indication: Performance enhancing product use
     Dosage: UNK UNKNOWN, UNKNOWN
     Route: 065

REACTIONS (3)
  - Phaeochromocytoma [Recovered/Resolved]
  - Hepatomegaly [Recovered/Resolved]
  - Drug abuse [Recovered/Resolved]

NARRATIVE: CASE EVENT DATE: 20160101
